FAERS Safety Report 5590659-8 (Version None)
Quarter: 2008Q1

REPORT INFORMATION
  Report Type: 
  Country: None (occurrence: None)
  Receive Date: 20080114
  Receipt Date: 20080109
  Transmission Date: 20080703
  Serious: Yes (Hospitalization)
  Sender: FDA-Public Use
  Company Number: AU-MERCK-0801AUS00048

PATIENT
  Age: 71 Year
  Sex: Female

DRUGS (3)
  1. FOSAMAX [Suspect]
     Indication: OSTEOPOROSIS
     Route: 048
     Dates: start: 20031001, end: 20071201
  2. ASPIRIN [Concomitant]
     Route: 065
  3. GLUCOSAMINE [Concomitant]
     Route: 065

REACTIONS (2)
  - CHEST PAIN [None]
  - OESOPHAGEAL DISORDER [None]
